FAERS Safety Report 9284453 (Version 1)
Quarter: 2013Q2

REPORT INFORMATION
  Report Type: Spontaneous
  Country: US (occurrence: US)
  Receive Date: 20130510
  Receipt Date: 20130510
  Transmission Date: 20140414
  Serious: Yes (Other)
  Sender: FDA-Public Use
  Company Number: US-UCBSA-085160

PATIENT
  Age: 26 Year
  Sex: Male

DRUGS (4)
  1. VIMPAT [Suspect]
  2. KEPPRA [Suspect]
  3. TYLENOL [Suspect]
     Indication: NASOPHARYNGITIS
  4. TYLENOL [Suspect]
     Indication: PYREXIA

REACTIONS (3)
  - Ammonia increased [Unknown]
  - Nasopharyngitis [Unknown]
  - Pyrexia [Unknown]
